FAERS Safety Report 6959651-2 (Version None)
Quarter: 2010Q3

REPORT INFORMATION
  Report Type: 
  Country: None (occurrence: None)
  Receive Date: 20100827
  Receipt Date: 20100813
  Transmission Date: 20110219
  Serious: Yes (Life-Threatening, Other)
  Sender: FDA-Public Use
  Company Number: LEO-2010-00678

PATIENT
  Age: 60 Year
  Sex: Female

DRUGS (8)
  1. DOVONEX [Suspect]
     Indication: PSORIASIS
     Dosage: 8-10 GRAM (2 IN 1 D), TOPICAL
     Route: 061
     Dates: start: 20100507, end: 20100726
  2. CYCLOSPORINE [Suspect]
     Indication: PSORIASIS
     Dosage: 7 GM (3.5 GM, 2 IN 1 D), ORAL
     Route: 048
     Dates: start: 20100614, end: 20100726
  3. OXAROL (MAXACALCITOL) [Suspect]
     Indication: PSORIASIS
     Dosage: 7.5 GM (3.75 GM, 2 IN 1 D), TOPICAL
     Route: 061
     Dates: start: 20100507, end: 20100726
  4. FAMOTIDINE (FAMOTIDINE) (TABLETS) [Concomitant]
  5. ALESION (EPINASTINE HYDROCHLORIDE) (TABLETS) [Concomitant]
  6. DIFLUPREDNATE (DIFLUPERDNATE) (OINTMENT) [Concomitant]
  7. ETIZOLAM (ETIZOLAM) (TABLETS) [Concomitant]
  8. ALLELOCK (OLOPATADINE HYDROCHLORIDE) (TABLETS) [Concomitant]

REACTIONS (7)
  - DECREASED APPETITE [None]
  - DEHYDRATION [None]
  - HYPERCALCAEMIA [None]
  - MALAISE [None]
  - RASH PUSTULAR [None]
  - RENAL FAILURE ACUTE [None]
  - TREMOR [None]
